FAERS Safety Report 15839552 (Version 2)
Quarter: 2019Q2

REPORT INFORMATION
  Report Type: Spontaneous
  Country: IR (occurrence: IR)
  Receive Date: 20190117
  Receipt Date: 20190426
  Transmission Date: 20190711
  Serious: Yes (Death, Hospitalization, Other)
  Sender: FDA-Public Use
  Company Number: IR-ABBVIE-19S-080-2630237-00

PATIENT
  Sex: Male

DRUGS (1)
  1. SURVANTA [Suspect]
     Active Substance: BERACTANT
     Indication: NEONATAL RESPIRATORY DISTRESS SYNDROME
     Dosage: 4CC/KG APPROXIMATELY12
     Route: 039

REACTIONS (4)
  - Pulmonary haemorrhage [Fatal]
  - Bradycardia [Unknown]
  - Apnoea [Unknown]
  - Tracheal haemorrhage [Fatal]
